FAERS Safety Report 7081551-0 (Version None)
Quarter: 2010Q4

REPORT INFORMATION
  Report Type: 
  Country: None (occurrence: None)
  Receive Date: 20101102
  Receipt Date: 20101102
  Transmission Date: 20110411
  Serious: No
  Sender: FDA-Public Use
  Company Number: None

PATIENT
  Age: 51 Year
  Sex: Male

DRUGS (7)
  1. AMPYRA [Suspect]
     Dosage: 10MG Q12H ORALLY
     Route: 048
  2. DIAZEPAM [Concomitant]
  3. OMEPRAZOLE [Concomitant]
  4. OMEGA-3 FATTY ACIDS/FISH OIL [Concomitant]
  5. SIMVASTATIN [Concomitant]
  6. TIZANIDINE HCL [Concomitant]
  7. BUPROPION [Concomitant]

REACTIONS (1)
  - OEDEMA PERIPHERAL [None]
